FAERS Safety Report 6259932-4 (Version None)
Quarter: 2009Q3

REPORT INFORMATION
  Report Type: 
  Country: None (occurrence: None)
  Receive Date: 20090708
  Receipt Date: 20090705
  Transmission Date: 20100115
  Serious: Yes (Death)
  Sender: FDA-Public Use
  Company Number: NL-CELGENEUS-114-50794-09070248

PATIENT
  Sex: Male

DRUGS (2)
  1. VIDAZA [Suspect]
     Route: 065
  2. VIDAZA [Suspect]
     Indication: MYELOFIBROSIS

REACTIONS (1)
  - DEATH [None]
